FAERS Safety Report 8131598-8 (Version None)
Quarter: 2012Q1

REPORT INFORMATION
  Report Type: 
  Country: None (occurrence: None)
  Receive Date: 20120208
  Receipt Date: 20120126
  Transmission Date: 20120608
  Serious: Yes (Life-Threatening, Hospitalization, Other)
  Sender: FDA-Public Use
  Company Number: 2012MA001257

PATIENT
  Sex: Male
  Weight: 88 kg

DRUGS (6)
  1. VYTORIN [Concomitant]
  2. ALTACE [Concomitant]
  3. COUMADIN [Concomitant]
  4. DIGOXIN [Suspect]
     Indication: PRODUCT USED FOR UNKNOWN INDICATION
     Dosage: 250 MCG;QD;PO
     Route: 048
     Dates: start: 20071127, end: 20080301
  5. CHANTIX [Concomitant]
  6. FLECAINIDE ACETATE [Concomitant]

REACTIONS (13)
  - DIZZINESS [None]
  - FALL [None]
  - SYNCOPE [None]
  - VENTRICULAR TACHYCARDIA [None]
  - CARDIAC ARREST [None]
  - ATRIAL FLUTTER [None]
  - UNRESPONSIVE TO STIMULI [None]
  - TACHYCARDIA [None]
  - TREMOR [None]
  - VISION BLURRED [None]
  - NAUSEA [None]
  - HEAD INJURY [None]
  - DYSPNOEA [None]
